FAERS Safety Report 22256378 (Version 3)
Quarter: 2023Q2

REPORT INFORMATION
  Report Type: Spontaneous
  Country: JP (occurrence: JP)
  Receive Date: 20230426
  Receipt Date: 20230606
  Transmission Date: 20230722
  Serious: Yes (Hospitalization)
  Sender: FDA-Public Use
  Company Number: JP-JNJFOC-20230448727

PATIENT
  Age: 63 Year
  Sex: Female

DRUGS (2)
  1. THROMBIN HUMAN [Suspect]
     Active Substance: THROMBIN HUMAN
     Indication: Osteorrhagia
     Route: 065
  2. THROMBIN HUMAN [Suspect]
     Active Substance: THROMBIN HUMAN
     Indication: Soft tissue haemorrhage

REACTIONS (3)
  - Swelling [Recovered/Resolved]
  - Inflammation [Recovered/Resolved]
  - Blister [Recovered/Resolved]

NARRATIVE: CASE EVENT DATE: 20230401
